FAERS Safety Report 18692600 (Version 1)
Quarter: 2021Q1

REPORT INFORMATION
  Report Type: Report from Study
  Country: None (occurrence: CA)
  Receive Date: 20210103
  Receipt Date: 20210103
  Transmission Date: 20210419
  Serious: Yes (Hospitalization)
  Sender: FDA-Public Use
  Company Number: CA-ABBVIE-20K-028-3711880-00

PATIENT
  Age: 45 Year
  Sex: Male

DRUGS (1)
  1. MAVIRET [Suspect]
     Active Substance: GLECAPREVIR\PIBRENTASVIR
     Indication: CHRONIC HEPATITIS C
     Route: 048
     Dates: start: 20201205

REACTIONS (3)
  - Corrective lens user [Unknown]
  - Fall [Unknown]
  - Alcohol use disorder [Unknown]

NARRATIVE: CASE EVENT DATE: 202012
